FAERS Safety Report 10358593 (Version 2)
Quarter: 2014Q3

REPORT INFORMATION
  Report Type: Spontaneous
  Country: DE (occurrence: DE)
  Receive Date: 20140803
  Receipt Date: 20140814
  Transmission Date: 20150326
  Serious: Yes (Hospitalization)
  Sender: FDA-Public Use
  Company Number: PHHY2014DE093525

PATIENT
  Age: 5 Year
  Sex: Male

DRUGS (3)
  1. JODTHYROX [Concomitant]
     Active Substance: LEVOTHYROXINE SODIUM\POTASSIUM IODIDE
     Indication: THYROID DISORDER
     Dosage: UNK UKN, UNK
  2. TEGRETAL [Suspect]
     Active Substance: CARBAMAZEPINE
     Dosage: 1 DF, UNK (2 G IN 100 ML)
     Route: 048
  3. TEGRETAL [Suspect]
     Active Substance: CARBAMAZEPINE
     Indication: EPILEPSY
     Dosage: 1 DF, UNK (2 G IN 100 ML)
     Route: 048
     Dates: start: 2010

REACTIONS (4)
  - Vomiting [Recovering/Resolving]
  - Ileus [Recovering/Resolving]
  - Rash [Recovering/Resolving]
  - Diarrhoea [Unknown]

NARRATIVE: CASE EVENT DATE: 2012
